FAERS Safety Report 10244971 (Version 2)
Quarter: 2015Q3

REPORT INFORMATION
  Report Type: Spontaneous
  Country: US (occurrence: US)
  Receive Date: 20140618
  Receipt Date: 20150806
  Transmission Date: 20151125
  Serious: Yes (Other)
  Sender: FDA-Public Use
  Company Number: US-PURDUE-USA-2014-0114936

PATIENT
  Age: 23 Year
  Sex: Female
  Weight: 79.8 kg

DRUGS (3)
  1. INOTUZUMAB OZOGAMICIN [Suspect]
     Active Substance: INOTUZUMAB OZOGAMICIN
     Indication: PRODUCT USED FOR UNKNOWN INDICATION
     Dosage: 1.8 MG/M2, VARAIBLE DOSING
     Route: 041
     Dates: start: 20140523
  2. DILAUDID [Suspect]
     Active Substance: HYDROMORPHONE HYDROCHLORIDE
     Indication: PAIN
     Dosage: 1-6MG PRN
     Route: 042
     Dates: start: 20140416, end: 20140521
  3. DEXTROSE AND SODIUM CHLORIDE [Suspect]
     Active Substance: DEXTROSE MONOHYDRATE\SODIUM CHLORIDE
     Indication: FLUID REPLACEMENT
     Dosage: 250 ML/HR OVER 24 HR POST INFUSION
     Route: 042
     Dates: start: 20140523, end: 20140524

REACTIONS (4)
  - Red blood cell count decreased [Unknown]
  - Blood chloride increased [Unknown]
  - Headache [Unknown]
  - Haemoglobin decreased [Unknown]

NARRATIVE: CASE EVENT DATE: 20140524
